FAERS Safety Report 17821297 (Version 5)
Quarter: 2020Q4

REPORT INFORMATION
  Report Type: Report from Study
  Country: US (occurrence: US)
  Receive Date: 20200525
  Receipt Date: 20201117
  Transmission Date: 20210113
  Serious: Yes (Death, Life-Threatening, Hospitalization, Other)
  Sender: FDA-Public Use
  Company Number: US-SA-2020SA112586

PATIENT

DRUGS (40)
  1. ARIXTRA [Concomitant]
     Active Substance: FONDAPARINUX SODIUM
     Dosage: 10 MG, QD
     Route: 058
     Dates: start: 20200506, end: 20200512
  2. TOCILIZUMAB. [Concomitant]
     Active Substance: TOCILIZUMAB
     Indication: COVID-19
     Dosage: 800 MG, QD
     Route: 042
     Dates: start: 20200429, end: 20200430
  3. TOCILIZUMAB. [Concomitant]
     Active Substance: TOCILIZUMAB
     Dosage: 800 MG ONCE
     Route: 042
     Dates: start: 20200502, end: 20200502
  4. SARILUMAB [Suspect]
     Active Substance: SARILUMAB
     Dosage: 400 MG, 1X
     Route: 042
     Dates: start: 20200421, end: 20200421
  5. PREDNISONE. [Concomitant]
     Active Substance: PREDNISONE
     Indication: COVID-19
     Dosage: 60 MG, QD
     Route: 048
     Dates: start: 20200411, end: 20200416
  6. METHYLPREDNISOLONE. [Concomitant]
     Active Substance: METHYLPREDNISOLONE
     Dosage: 200 MG, 1X
     Route: 042
     Dates: start: 20200502, end: 20200502
  7. FUROSEMIDE. [Concomitant]
     Active Substance: FUROSEMIDE
     Indication: RESPIRATORY FAILURE
     Dosage: 20 MG, 1X
     Route: 042
     Dates: start: 20200418, end: 20200418
  8. AZITHROMYCIN ANHYDROUS. [Concomitant]
     Active Substance: AZITHROMYCIN ANHYDROUS
     Indication: COVID-19
     Dosage: 500 MG, QD
     Route: 048
     Dates: start: 20200411, end: 20200415
  9. LOVENOX [Concomitant]
     Active Substance: ENOXAPARIN SODIUM
     Dosage: 40 MG, BID
     Route: 058
     Dates: start: 20200417, end: 20200422
  10. LOVENOX [Concomitant]
     Active Substance: ENOXAPARIN SODIUM
     Dosage: 120 MG, Q12H
     Route: 058
     Dates: start: 20200422, end: 20200423
  11. METHYLPREDNISOLONE. [Concomitant]
     Active Substance: METHYLPREDNISOLONE
     Indication: COVID-19
     Dosage: 125 MG, 1X
     Route: 042
     Dates: start: 20200416, end: 20200416
  12. EPOPROSTENOL. [Concomitant]
     Active Substance: EPOPROSTENOL
     Dosage: 1.5 MG, CONT
     Dates: start: 20200421, end: 20200506
  13. EPOPROSTENOL. [Concomitant]
     Active Substance: EPOPROSTENOL
     Indication: RESPIRATORY FAILURE
  14. ANGIOMAX [Concomitant]
     Active Substance: BIVALIRUDIN
     Indication: COVID-19
     Dosage: 250 MG, UNK
     Route: 042
     Dates: start: 20200425, end: 20200506
  15. ACETAMINOPHEN. [Concomitant]
     Active Substance: ACETAMINOPHEN
     Dosage: 650 MG;  (ONCE PRN)
     Route: 048
     Dates: start: 20200504, end: 20200504
  16. FUROSEMIDE. [Concomitant]
     Active Substance: FUROSEMIDE
     Indication: RESPIRATORY FAILURE
  17. SARILUMAB [Suspect]
     Active Substance: SARILUMAB
     Indication: COVID-19
     Dosage: 400 MG, 1X
     Route: 042
     Dates: start: 20200413, end: 20200413
  18. CEFTRIAXONE. [Concomitant]
     Active Substance: CEFTRIAXONE
     Indication: COVID-19
     Dosage: 1 G, QD
     Route: 042
     Dates: start: 20200411, end: 20200415
  19. METHYLPREDNISOLONE. [Concomitant]
     Active Substance: METHYLPREDNISOLONE
     Dosage: 40 MG, Q12H
     Route: 042
     Dates: start: 20200419, end: 20200421
  20. METHYLPREDNISOLONE. [Concomitant]
     Active Substance: METHYLPREDNISOLONE
     Dosage: 250 MG, QD
     Route: 042
     Dates: start: 20200503, end: 20200505
  21. PHYTONADIONE. [Concomitant]
     Active Substance: PHYTONADIONE
     Indication: INTERNATIONAL NORMALISED RATIO
     Dosage: 5 MG, QD
     Route: 048
     Dates: start: 20200417, end: 20200419
  22. ARIXTRA [Concomitant]
     Active Substance: FONDAPARINUX SODIUM
     Indication: COVID-19
     Dosage: 2.5 MG, QD
     Route: 058
     Dates: start: 20200424, end: 20200425
  23. METHYLPREDNISOLONE. [Concomitant]
     Active Substance: METHYLPREDNISOLONE
     Dosage: 500 MG, QD
     Route: 042
     Dates: start: 20200527, end: 20200529
  24. PHYTONADIONE. [Concomitant]
     Active Substance: PHYTONADIONE
     Indication: INTERNATIONAL NORMALISED RATIO
  25. ANGIOMAX [Concomitant]
     Active Substance: BIVALIRUDIN
     Dosage: TITRATED CONTINUS INFUSION
     Route: 042
     Dates: start: 20200515, end: 20200516
  26. IMMUNOGLOBULIN [IMMUNOGLOBULIN HUMAN NORMAL] [Concomitant]
     Active Substance: HUMAN IMMUNOGLOBULIN G
     Indication: COVID-19
     Dosage: 35 G, QD
     Route: 042
     Dates: start: 20200425, end: 20200427
  27. LOVENOX [Concomitant]
     Active Substance: ENOXAPARIN SODIUM
     Indication: COVID-19
     Dosage: 40 MG, Q12H
     Route: 058
     Dates: start: 20200412, end: 20200417
  28. LOVENOX [Concomitant]
     Active Substance: ENOXAPARIN SODIUM
     Dosage: 40 MG, QD
     Route: 058
     Dates: start: 20200423, end: 20200424
  29. METHYLPREDNISOLONE. [Concomitant]
     Active Substance: METHYLPREDNISOLONE
     Dosage: 500 MG, QD
     Route: 042
     Dates: start: 20200418, end: 20200418
  30. METHYLPREDNISOLONE. [Concomitant]
     Active Substance: METHYLPREDNISOLONE
     Dosage: 40 MG, QD
     Route: 042
     Dates: start: 20200422, end: 20200426
  31. METHYLPREDNISOLONE. [Concomitant]
     Active Substance: METHYLPREDNISOLONE
     Dosage: 250 MG UNK
     Route: 042
     Dates: start: 20200530, end: 20200601
  32. ACETAMINOPHEN. [Concomitant]
     Active Substance: ACETAMINOPHEN
     Dosage: 650 MG, Q6H PRN
     Route: 048
     Dates: start: 20200513, end: 20200520
  33. LOVENOX [Concomitant]
     Active Substance: ENOXAPARIN SODIUM
     Dosage: 40 MG, QD
     Route: 058
     Dates: start: 20200417, end: 20200417
  34. METHYLPREDNISOLONE. [Concomitant]
     Active Substance: METHYLPREDNISOLONE
     Dosage: 250 MG, 1X
     Route: 042
     Dates: start: 20200417, end: 20200417
  35. METHYLPREDNISOLONE. [Concomitant]
     Active Substance: METHYLPREDNISOLONE
     Dosage: 250 MG, QD
     Route: 042
     Dates: start: 20200426, end: 20200427
  36. METHYLPREDNISOLONE. [Concomitant]
     Active Substance: METHYLPREDNISOLONE
     Dosage: 60 MG, QD
     Route: 042
     Dates: start: 20200428, end: 20200502
  37. TOCILIZUMAB. [Concomitant]
     Active Substance: TOCILIZUMAB
     Dosage: 944 MG, SINGLE
     Route: 042
     Dates: start: 20200502, end: 20200502
  38. ACETAMINOPHEN. [Concomitant]
     Active Substance: ACETAMINOPHEN
     Dosage: 650 MG,  (ONCE PRN)
     Route: 042
     Dates: start: 20200502, end: 20200502
  39. METHYLPREDNISOLONE. [Concomitant]
     Active Substance: METHYLPREDNISOLONE
     Dosage: 250 MG, QD
     Route: 042
     Dates: start: 20200417, end: 20200417
  40. ACETAMINOPHEN. [Concomitant]
     Active Substance: ACETAMINOPHEN
     Indication: COVID-19
     Dosage: 650 MG, (ONCE PRN)
     Route: 048
     Dates: start: 20200430, end: 20200430

REACTIONS (11)
  - Acute respiratory failure [Fatal]
  - Myocardial infarction [Not Recovered/Not Resolved]
  - Oesophageal ulcer haemorrhage [Not Recovered/Not Resolved]
  - Bradycardia [Recovered/Resolved]
  - Renal tubular necrosis [Recovered/Resolved with Sequelae]
  - Septic shock [Recovered/Resolved with Sequelae]
  - Respiratory failure [Recovered/Resolved with Sequelae]
  - Bacteraemia [Not Recovered/Not Resolved]
  - Atrial flutter [Recovered/Resolved with Sequelae]
  - Transaminases increased [Recovered/Resolved]
  - Pulmonary alveolar haemorrhage [Not Recovered/Not Resolved]

NARRATIVE: CASE EVENT DATE: 20200417
